FAERS Safety Report 9309926 (Version 3)
Quarter: 2013Q3

REPORT INFORMATION
  Report Type: Spontaneous
  Country: JP (occurrence: JP)
  Receive Date: 20130527
  Receipt Date: 20130829
  Transmission Date: 20140515
  Serious: Yes (Death, Hospitalization)
  Sender: FDA-Public Use
  Company Number: JP-AMGEN-JPNSP2013037033

PATIENT
  Age: 59 Year
  Sex: Male
  Weight: 58 kg

DRUGS (10)
  1. VECTIBIX [Suspect]
     Indication: COLON CANCER
     Dosage: 350 MG, Q2WK
     Route: 041
     Dates: start: 20130415, end: 20130415
  2. TOPOTECIN [Suspect]
     Indication: COLON CANCER
     Dosage: 140 MG, Q2WK
     Route: 041
     Dates: start: 20130415, end: 20130415
  3. 5-FU                               /00098801/ [Concomitant]
     Indication: COLON CANCER
     Dosage: 650 MG, Q2WK
     Route: 040
     Dates: start: 20130415, end: 20130415
  4. 5-FU                               /00098801/ [Concomitant]
     Dosage: 3800 MG, Q2WK
     Route: 041
     Dates: start: 20130415, end: 20130415
  5. CALCIUM LEVOFOLINATE [Concomitant]
     Indication: COLON CANCER
     Dosage: 325 MG, Q2WK
     Route: 041
     Dates: start: 20130415, end: 20130415
  6. EMEND                              /01627301/ [Concomitant]
     Indication: PROPHYLAXIS OF NAUSEA AND VOMITING
     Dosage: 125 MG, QD
     Route: 048
     Dates: start: 20130415, end: 20130415
  7. DECADRON                           /00016001/ [Concomitant]
     Dosage: 13.2 MG, UNK
     Route: 065
     Dates: start: 20130415, end: 20130415
  8. ALOXI [Concomitant]
     Indication: PROPHYLAXIS OF NAUSEA AND VOMITING
     Dosage: 0.75 MG, QD
     Route: 042
     Dates: start: 20130415, end: 20130415
  9. CHLOR TRIMETON [Concomitant]
     Dosage: 10 MG, UNK
     Route: 042
     Dates: start: 20130415, end: 20130415
  10. HEPARIN SODIUM [Concomitant]
     Dosage: 5000 IU, UNK
     Route: 042
     Dates: start: 20130415, end: 20130415

REACTIONS (1)
  - Interstitial lung disease [Fatal]
